FAERS Safety Report 7404265-3 (Version None)
Quarter: 2011Q1

REPORT INFORMATION
  Report Type: 
  Country: None (occurrence: None)
  Receive Date: 20110330
  Receipt Date: 20110322
  Transmission Date: 20110831
  Serious: Yes (Other)
  Sender: FDA-Public Use
  Company Number: MIN-00716

PATIENT
  Sex: Female

DRUGS (1)
  1. MINOCYCLINE [Suspect]

REACTIONS (2)
  - VIITH NERVE PARALYSIS [None]
  - BENIGN INTRACRANIAL HYPERTENSION [None]
